FAERS Safety Report 9335454 (Version 3)
Quarter: 2013Q3

REPORT INFORMATION
  Report Type: Report from Study
  Country: US (occurrence: US)
  Receive Date: 20130606
  Receipt Date: 20130905
  Transmission Date: 20140515
  Serious: Yes (Hospitalization)
  Sender: FDA-Public Use
  Company Number: US-ROCHE-1233090

PATIENT
  Age: 63 Year
  Sex: Female
  Weight: 54.5 kg

DRUGS (2)
  1. XELODA [Suspect]
     Indication: BREAST CANCER STAGE IV
     Route: 048
     Dates: start: 20130103
  2. XELODA [Suspect]
     Route: 065
     Dates: start: 20130602

REACTIONS (5)
  - Mastectomy [Unknown]
  - Skin exfoliation [Recovered/Resolved]
  - Skin fissures [Unknown]
  - Rash [Not Recovered/Not Resolved]
  - Drug ineffective [Unknown]
